FAERS Safety Report 5604368-X (Version None)
Quarter: 2008Q1

REPORT INFORMATION
  Report Type: 
  Country: None (occurrence: None)
  Receive Date: 20080123
  Receipt Date: 20080123
  Transmission Date: 20080703
  Serious: Yes (Other)
  Sender: FDA-Public Use
  Company Number: None

PATIENT
  Sex: Female
  Weight: 127.0072 kg

DRUGS (1)
  1. ADVAIR DISKUS 500/50 [Suspect]
     Indication: RESPIRATORY DISORDER
     Dosage: 1 INHALE/PUFF TWICE DAILY  INHAL
     Route: 055
     Dates: start: 20071218, end: 20080112

REACTIONS (10)
  - CARDIAC FLUTTER [None]
  - CHEST DISCOMFORT [None]
  - DRY MOUTH [None]
  - DRY THROAT [None]
  - DYSPHONIA [None]
  - INCREASED TENDENCY TO BRUISE [None]
  - MUSCLE SPASMS [None]
  - PAIN [None]
  - PALPITATIONS [None]
  - POLYDIPSIA [None]
